FAERS Safety Report 5015943-8 (Version None)
Quarter: 2006Q2

REPORT INFORMATION
  Report Type: 
  Country: None (occurrence: None)
  Receive Date: 20060414
  Receipt Date: 20060308
  Transmission Date: 20061013
  Serious: No
  Sender: FDA-Public Use
  Company Number: 2006SP001172

PATIENT
  Age: 60 Year
  Sex: Female
  Weight: 95.2554 kg

DRUGS (11)
  1. LUNESTA [Suspect]
     Indication: INSOMNIA
     Dosage: SEE IMAGE
     Route: 048
     Dates: start: 20050101, end: 20060307
  2. LUNESTA [Suspect]
     Indication: INSOMNIA
     Dosage: SEE IMAGE
     Route: 048
     Dates: start: 20050101, end: 20060307
  3. WELLBUTRIN [Concomitant]
  4. METOPROLOL TARTRATE [Concomitant]
  5. LISINOPRIL [Concomitant]
  6. ESTROGENS CONJUGATED [Concomitant]
  7. TRAMADOL HCL [Concomitant]
  8. VITAMIN B6 [Concomitant]
  9. FOLIC ACID [Concomitant]
  10. CALCIUM GLUCONATE [Concomitant]
  11. AMBIEN [Concomitant]

REACTIONS (2)
  - MIDDLE INSOMNIA [None]
  - NIGHTMARE [None]
